FAERS Safety Report 20663294 (Version 5)
Quarter: 2022Q3

REPORT INFORMATION
  Report Type: Spontaneous
  Country: TR (occurrence: TR)
  Receive Date: 20220401
  Receipt Date: 20220930
  Transmission Date: 20221027
  Serious: Yes (Death, Hospitalization, Other)
  Sender: FDA-Public Use
  Company Number: TR-ABBVIE-22K-161-4341437-00

PATIENT
  Sex: Male
  Weight: 65 kg

DRUGS (7)
  1. CARBIDOPA\LEVODOPA [Suspect]
     Active Substance: CARBIDOPA\LEVODOPA
     Indication: Parkinson^s disease
     Dosage: MORNING DOSE (ML): 6.10 CONTINIOUS DOSE (ML): 2.70 EXTRA DOSE (ML): 1.00
     Route: 050
     Dates: start: 20170117
  2. CARBIDOPA\LEVODOPA [Suspect]
     Active Substance: CARBIDOPA\LEVODOPA
     Route: 050
  3. Kalinor [Concomitant]
     Indication: Mineral supplementation
     Route: 048
     Dates: end: 202206
  4. REMERON [Concomitant]
     Active Substance: MIRTAZAPINE
     Indication: Depression
     Dosage: 15 MILLIGRAM
     Route: 048
  5. ASPIRIN [Concomitant]
     Active Substance: ASPIRIN
     Indication: Prophylaxis
     Dosage: 81 MILLIGRAM
     Route: 048
  6. MUCOVIT C [Concomitant]
     Indication: Vitamin supplementation
     Dosage: 900 MILLIGRAM
     Route: 048
     Dates: end: 202206
  7. COVID-19 vaccine [Concomitant]
     Indication: COVID-19 immunisation
     Dosage: 1 IN ONCE
     Route: 030

REACTIONS (6)
  - COVID-19 [Recovered/Resolved]
  - Hypophagia [Not Recovered/Not Resolved]
  - Device occlusion [Recovered/Resolved]
  - Death [Fatal]
  - Dysphagia [Not Recovered/Not Resolved]
  - Dyspnoea [Not Recovered/Not Resolved]

NARRATIVE: CASE EVENT DATE: 20220101
